FAERS Safety Report 6274730-3 (Version None)
Quarter: 2009Q3

REPORT INFORMATION
  Report Type: 
  Country: None (occurrence: None)
  Receive Date: 20090717
  Receipt Date: 20090701
  Transmission Date: 20100115
  Serious: Yes (Hospitalization)
  Sender: FDA-Public Use
  Company Number: B0583084A

PATIENT
  Age: 63 Year
  Sex: Male

DRUGS (4)
  1. FLUTICASONE PROPIONATE [Suspect]
     Dosage: INHALED
     Route: 055
  2. DEFLAZACORT (FORMULATION UNKNOWN) (DEFLAZACORT) [Suspect]
     Dosage: ORAL
     Route: 048
  3. MONTELUKAST SODIUM [Concomitant]
  4. TIOTROPIUM [Concomitant]

REACTIONS (33)
  - ABDOMINAL PAIN UPPER [None]
  - ADRENAL INSUFFICIENCY [None]
  - ASTHENIA [None]
  - CHOLELITHIASIS [None]
  - CHOLESTASIS [None]
  - COAGULOPATHY [None]
  - CYTOLYTIC HEPATITIS [None]
  - HEPATIC STEATOSIS [None]
  - HEPATOSPLENOMEGALY [None]
  - HISTIOCYTOSIS HAEMATOPHAGIC [None]
  - HYPERGLYCAEMIA [None]
  - HYPERHIDROSIS [None]
  - HYPERTRIGLYCERIDAEMIA [None]
  - HYPOCHLORAEMIA [None]
  - HYPONATRAEMIA [None]
  - HYPOTENSION [None]
  - LEISHMANIASIS [None]
  - LEUKOPENIA [None]
  - LYMPHADENOPATHY [None]
  - MALAISE [None]
  - MULTI-ORGAN FAILURE [None]
  - PLEURAL EFFUSION [None]
  - PYREXIA [None]
  - RESPIRATORY ALKALOSIS [None]
  - SEPTIC SHOCK [None]
  - SOMNOLENCE [None]
  - SPLENOMEGALY [None]
  - TACHYCARDIA [None]
  - TACHYPNOEA [None]
  - TRANSAMINASES INCREASED [None]
  - VISCERAL LEISHMANIASIS [None]
  - VOMITING [None]
  - WEIGHT DECREASED [None]
